FAERS Safety Report 6225994-3 (Version None)
Quarter: 2009Q2

REPORT INFORMATION
  Report Type: 
  Country: None (occurrence: None)
  Receive Date: 20090612
  Receipt Date: 20090606
  Transmission Date: 20091009
  Serious: Yes (Death, Other)
  Sender: FDA-Public Use
  Company Number: US-PFIZER INC-2009181875

PATIENT
  Sex: Male

DRUGS (1)
  1. SUTENT [Suspect]
     Dosage: 37.5 MG, 4 WEEKS ON, 2 WEEKS OFF

REACTIONS (5)
  - CARDIAC DISORDER [None]
  - DISEASE PROGRESSION [None]
  - LUNG DISORDER [None]
  - MALIGNANT PLEURAL EFFUSION [None]
  - NEOPLASM MALIGNANT [None]
